FAERS Safety Report 7752894-X (Version None)
Quarter: 2011Q3

REPORT INFORMATION
  Report Type: 
  Country: None (occurrence: None)
  Receive Date: 20110915
  Receipt Date: 20110905
  Transmission Date: 20111222
  Serious: Yes (Other)
  Sender: FDA-Public Use
  Company Number: JP-ALLERGAN-1112006US

PATIENT
  Age: 75 Year
  Sex: Male

DRUGS (1)
  1. BOTOX [Suspect]
     Indication: PRODUCT USED FOR UNKNOWN INDICATION
     Route: 030

REACTIONS (3)
  - PARAESTHESIA [None]
  - VIITH NERVE PARALYSIS [None]
  - VISUAL ACUITY REDUCED [None]
